FAERS Safety Report 21911205 (Version 1)
Quarter: 2023Q1

REPORT INFORMATION
  Report Type: Spontaneous
  Country: US (occurrence: None)
  Receive Date: 20230125
  Receipt Date: 20230125
  Transmission Date: 20230418
  Serious: Yes (Hospitalization)
  Sender: FDA-Public Use
  Company Number: None

PATIENT
  Age: 45 Year
  Sex: Female
  Weight: 71.55 kg

DRUGS (12)
  1. FLUCONAZOLE [Suspect]
     Active Substance: FLUCONAZOLE
     Indication: Vulvovaginal mycotic infection
     Dates: start: 20230116, end: 20230117
  2. METHOTREXATE [Concomitant]
     Active Substance: METHOTREXATE
  3. LEUCOVORIN [Concomitant]
     Active Substance: LEUCOVORIN
  4. LEUCOVORIN [Concomitant]
     Active Substance: LEUCOVORIN
  5. LEVOTHYROXINE [Concomitant]
     Active Substance: LEVOTHYROXINE
  6. WELLBUTRIN [Concomitant]
     Active Substance: BUPROPION HYDROCHLORIDE
  7. OMEPRAZOLE [Concomitant]
     Active Substance: OMEPRAZOLE
  8. PHENTERMINE [Concomitant]
     Active Substance: PHENTERMINE
  9. TOPIRAMATE [Concomitant]
     Active Substance: TOPIRAMATE
  10. GABAPENTIN [Concomitant]
     Active Substance: GABAPENTIN
  11. HYDROCHLOROTHIAZIDE [Concomitant]
     Active Substance: HYDROCHLOROTHIAZIDE
  12. VITAMIN D [Concomitant]
     Active Substance: VITAMIN D NOS

REACTIONS (14)
  - Cheilitis [None]
  - Scab [None]
  - Lip pain [None]
  - Lip haemorrhage [None]
  - Fibrosis [None]
  - Pain in extremity [None]
  - Pruritus [None]
  - Erythema [None]
  - Stomatitis [None]
  - Chest pain [None]
  - Dyspnoea [None]
  - Oral disorder [None]
  - Mucosal erosion [None]
  - Immunodeficiency [None]

NARRATIVE: CASE EVENT DATE: 20230116
